FAERS Safety Report 7591398-4 (Version None)
Quarter: 2011Q3

REPORT INFORMATION
  Report Type: 
  Country: None (occurrence: None)
  Receive Date: 20110706
  Receipt Date: 20110624
  Transmission Date: 20111222
  Serious: Yes (Death)
  Sender: FDA-Public Use
  Company Number: JP-AMGEN-JPNCT2011031995

PATIENT
  Age: 62 Year
  Sex: Female
  Weight: 55 kg

DRUGS (3)
  1. PASIL [Concomitant]
     Indication: INFECTION
     Route: 042
     Dates: start: 20110613, end: 20110614
  2. PANITUMUMAB [Suspect]
     Indication: COLORECTAL CANCER
     Dosage: 300 MG, Q2WK
     Route: 041
     Dates: start: 20110614, end: 20110614
  3. FLUCONAZOLE [Concomitant]
     Indication: INFECTION
     Route: 042
     Dates: start: 20110610, end: 20110614

REACTIONS (1)
  - DEATH [None]
